FAERS Safety Report 8981414 (Version 4)
Quarter: 2013Q1

REPORT INFORMATION
  Report Type: Spontaneous
  Country: US (occurrence: US)
  Receive Date: 20121221
  Receipt Date: 20130131
  Transmission Date: 20140127
  Serious: No
  Sender: FDA-Public Use
  Company Number: US-PFIZER INC-2012320690

PATIENT
  Sex: Female

DRUGS (2)
  1. ARTHROTEC [Suspect]
     Indication: ARTHRITIS
     Dosage: 75 MG, 3X/DAY
     Route: 048
     Dates: start: 2010
  2. ARTHROTEC [Suspect]
     Dosage: 50 MG, 3X/DAY
     Route: 048

REACTIONS (3)
  - Abdominal discomfort [Unknown]
  - Drug ineffective [Unknown]
  - Memory impairment [Unknown]
